FAERS Safety Report 9391014 (Version 1)
Quarter: 2013Q3

REPORT INFORMATION
  Report Type: Spontaneous
  Country: IT (occurrence: None)
  Receive Date: 20130705
  Receipt Date: 20130705
  Transmission Date: 20140515
  Serious: Yes (Death)
  Sender: FDA-Public Use
  Company Number: IT-007934

PATIENT
  Age: 67 Year
  Sex: Female
  Weight: 58.8 kg

DRUGS (1)
  1. CHLORAMBUCIL [Suspect]
     Indication: CHRONIC LYMPHOCYTIC LEUKAEMIA
     Dosage: 10 MG/M2 ON DAYS 1-7 EVERY 28 DAYS (10 MG/M2), ORAL
     Route: 048
     Dates: start: 20091020, end: 20091102

REACTIONS (5)
  - Septic shock [None]
  - Cerebral haemorrhage [None]
  - Cerebral ischaemia [None]
  - Pneumonia [None]
  - Cerebellar ischaemia [None]
